FAERS Safety Report 7902385 (Version 2)
Quarter: 2020Q3

REPORT INFORMATION
  Report Type: Report from Study
  Country: US (occurrence: US)
  Receive Date: 20110418
  Receipt Date: 20111004
  Transmission Date: 20201105
  Serious: Yes (Other)
  Sender: FDA-Public Use
  Company Number: US-JNJFOC-20110404281

PATIENT
  Age: 50 Year
  Sex: Male
  Weight: 111.59 kg

DRUGS (2)
  1. CISAPRIDE [Suspect]
     Active Substance: CISAPRIDE
     Route: 065
  2. CISAPRIDE [Suspect]
     Active Substance: CISAPRIDE
     Indication: PRODUCT USED FOR UNKNOWN INDICATION
     Route: 065

REACTIONS (1)
  - Electrocardiogram QT prolonged [Unknown]

NARRATIVE: CASE EVENT DATE: 20110304
